FAERS Safety Report 8111968-4 (Version None)
Quarter: 2012Q1

REPORT INFORMATION
  Report Type: 
  Country: None (occurrence: None)
  Receive Date: 20120203
  Receipt Date: 20111122
  Transmission Date: 20120608
  Serious: No
  Sender: FDA-Public Use
  Company Number: US-GLAXOSMITHKLINE-A0954325A

PATIENT
  Age: 62 Year
  Sex: Male

DRUGS (5)
  1. ARIXTRA [Suspect]
     Indication: THROMBOSIS PROPHYLAXIS
     Dosage: 7.5MG AS REQUIRED
     Route: 058
     Dates: start: 20111118, end: 20111120
  2. DIOVAN [Concomitant]
  3. ALLOPURINOL [Concomitant]
  4. ASPIRIN [Concomitant]
  5. POTASSIUM [Concomitant]

REACTIONS (3)
  - PYREXIA [None]
  - BACK PAIN [None]
  - FEELING COLD [None]
